FAERS Safety Report 25354653 (Version 1)
Quarter: 2025Q2

REPORT INFORMATION
  Report Type: Spontaneous
  Country: TW (occurrence: TW)
  Receive Date: 20250524
  Receipt Date: 20250524
  Transmission Date: 20250716
  Serious: Yes (Other)
  Sender: JAZZ
  Company Number: TW-JAZZ PHARMACEUTICALS-2025-TW-013130

PATIENT
  Age: 17 Year
  Sex: Male

DRUGS (1)
  1. CANNABIDIOL [Suspect]
     Active Substance: CANNABIDIOL
     Indication: Product used for unknown indication

REACTIONS (3)
  - Seizure [Unknown]
  - Aggression [Recovering/Resolving]
  - Sleep disorder [Recovering/Resolving]
